FAERS Safety Report 26138632 (Version 2)
Quarter: 2025Q4

REPORT INFORMATION
  Report Type: Spontaneous
  Country: CA (occurrence: CA)
  Receive Date: 20251210
  Receipt Date: 20251226
  Transmission Date: 20260117
  Serious: Yes (Other)
  Sender: BAUSCH AND LOMB
  Company Number: CA-BAUSCHBL-2025BNL033298

PATIENT
  Sex: Male

DRUGS (1)
  1. VYZULTA [Suspect]
     Active Substance: LATANOPROSTENE BUNOD
     Indication: Glaucoma
     Dates: start: 20240704

REACTIONS (3)
  - Uveitis [Unknown]
  - Vision blurred [Unknown]
  - Inappropriate schedule of product administration [Unknown]
